FAERS Safety Report 13474140 (Version 1)
Quarter: 2017Q2

REPORT INFORMATION
  Report Type: Spontaneous
  Country: US (occurrence: US)
  Receive Date: 20170424
  Receipt Date: 20170424
  Transmission Date: 20170830
  Serious: Yes (Hospitalization)
  Sender: FDA-Public Use
  Company Number: US-SA-2016SA177876

PATIENT
  Age: 77 Year
  Sex: Male

DRUGS (16)
  1. LOVENOX [Suspect]
     Active Substance: ENOXAPARIN SODIUM
     Indication: CARDIAC VALVE DISEASE
     Route: 065
     Dates: start: 2005
  2. LOVENOX [Suspect]
     Active Substance: ENOXAPARIN SODIUM
     Indication: COLONOSCOPY
     Route: 065
     Dates: start: 2005
  3. LOVENOX [Suspect]
     Active Substance: ENOXAPARIN SODIUM
     Indication: SURGERY
     Route: 065
     Dates: start: 20160918
  4. LOVENOX [Suspect]
     Active Substance: ENOXAPARIN SODIUM
     Indication: SURGERY
     Route: 065
     Dates: start: 201603
  5. LOVENOX [Suspect]
     Active Substance: ENOXAPARIN SODIUM
     Indication: HERNIA REPAIR
     Route: 065
     Dates: start: 2005
  6. LOVENOX [Suspect]
     Active Substance: ENOXAPARIN SODIUM
     Indication: SURGERY
     Route: 065
     Dates: start: 2007
  7. LOVENOX [Suspect]
     Active Substance: ENOXAPARIN SODIUM
     Indication: COLONOSCOPY
     Route: 065
     Dates: start: 201603
  8. LOVENOX [Suspect]
     Active Substance: ENOXAPARIN SODIUM
     Indication: HERNIA REPAIR
     Route: 065
     Dates: start: 201603
  9. LOVENOX [Suspect]
     Active Substance: ENOXAPARIN SODIUM
     Indication: HERNIA REPAIR
     Route: 065
     Dates: start: 20160918
  10. LOVENOX [Suspect]
     Active Substance: ENOXAPARIN SODIUM
     Indication: COLONOSCOPY
     Route: 065
     Dates: start: 20160918
  11. LOVENOX [Suspect]
     Active Substance: ENOXAPARIN SODIUM
     Indication: COLONOSCOPY
     Route: 065
     Dates: start: 2007
  12. LOVENOX [Suspect]
     Active Substance: ENOXAPARIN SODIUM
     Indication: CARDIAC VALVE DISEASE
     Route: 065
     Dates: start: 201603
  13. LOVENOX [Suspect]
     Active Substance: ENOXAPARIN SODIUM
     Indication: CARDIAC VALVE DISEASE
     Route: 065
     Dates: start: 20160918
  14. LOVENOX [Suspect]
     Active Substance: ENOXAPARIN SODIUM
     Indication: SURGERY
     Route: 065
     Dates: start: 2005
  15. LOVENOX [Suspect]
     Active Substance: ENOXAPARIN SODIUM
     Indication: CARDIAC VALVE DISEASE
     Route: 065
     Dates: start: 2007
  16. LOVENOX [Suspect]
     Active Substance: ENOXAPARIN SODIUM
     Indication: HERNIA REPAIR
     Route: 065
     Dates: start: 2007

REACTIONS (3)
  - Haematoma [Unknown]
  - Swelling [Unknown]
  - Pain [Unknown]

NARRATIVE: CASE EVENT DATE: 201603
